FAERS Safety Report 4486986-8 (Version None)
Quarter: 2004Q4

REPORT INFORMATION
  Report Type: 
  Country: None (occurrence: None)
  Receive Date: 20040921
  Receipt Date: 20031030
  Transmission Date: 20050328
  Serious: Yes (Disabling)
  Sender: FDA-Public Use
  Company Number: 163-20785-03110015

PATIENT
  Sex: Male

DRUGS (1)
  1. THALOMID [Suspect]
     Dosage: ORAL
     Route: 048
     Dates: start: 20021001, end: 20030901

REACTIONS (2)
  - NEUROPATHY PERIPHERAL [None]
  - WALKING AID USER [None]
